FAERS Safety Report 24435954 (Version 1)
Quarter: 2024Q4

REPORT INFORMATION
  Report Type: Spontaneous
  Country: US (occurrence: US)
  Receive Date: 20241015
  Receipt Date: 20241015
  Transmission Date: 20250114
  Serious: No
  Sender: SPROUT PHARMACEUTICALS, INC.
  Company Number: US-Sprout Pharmaceuticals, Inc.-2024SP000098

PATIENT
  Age: 39 Year
  Sex: Female

DRUGS (3)
  1. ADDYI [Suspect]
     Active Substance: FLIBANSERIN
     Indication: Libido decreased
     Dosage: RX # 8916371
     Route: 048
  2. ADDYI [Suspect]
     Active Substance: FLIBANSERIN
     Dosage: RX # 8916371
     Route: 048
     Dates: end: 202403
  3. METOPROLOL [Concomitant]
     Active Substance: METOPROLOL
     Indication: Tachycardia

REACTIONS (1)
  - Insomnia [Recovered/Resolved]

NARRATIVE: CASE EVENT DATE: 20240101
